FAERS Safety Report 6329575-2 (Version None)
Quarter: 2009Q3

REPORT INFORMATION
  Report Type: 
  Country: None (occurrence: None)
  Receive Date: 20090825
  Receipt Date: 20090825
  Transmission Date: 20100115
  Serious: Yes (Death)
  Sender: FDA-Public Use
  Company Number: None

PATIENT
  Sex: Male

DRUGS (1)
  1. SUBOXONE [Suspect]
     Indication: DRUG ABUSE
     Dosage: 16MG EVERY DAY SL
     Route: 060
     Dates: start: 20061219, end: 20061220

REACTIONS (4)
  - ARTERIOSCLEROSIS CORONARY ARTERY [None]
  - MENTAL DISORDER [None]
  - SKIN DISCOLOURATION [None]
  - SNORING [None]
